FAERS Safety Report 26013166 (Version 1)
Quarter: 2025Q4

REPORT INFORMATION
  Report Type: Spontaneous
  Country: US (occurrence: US)
  Receive Date: 20251107
  Receipt Date: 20251107
  Transmission Date: 20260119
  Serious: No
  Sender: JAZZ
  Company Number: US-JAZZ PHARMACEUTICALS-2025-US-014592

PATIENT
  Age: 3 Year
  Sex: Male

DRUGS (1)
  1. RYLAZE [Suspect]
     Active Substance: ASPARAGINASE ERWINIA CHRYSANTHEMI (RECOMBINANT)-RYWN
     Indication: Acute lymphocytic leukaemia
     Dosage: 4TH RYLAZE DOSE

REACTIONS (2)
  - Ammonia increased [Recovered/Resolved]
  - Mental status changes [Unknown]

NARRATIVE: CASE EVENT DATE: 20250530
